FAERS Safety Report 7275674-0 (Version None)
Quarter: 2011Q1

REPORT INFORMATION
  Report Type: 
  Country: None (occurrence: None)
  Receive Date: 20110202
  Receipt Date: 20110202
  Transmission Date: 20110831
  Serious: Yes (Hospitalization)
  Sender: FDA-Public Use
  Company Number: None

PATIENT
  Age: 11 Year
  Sex: Female

DRUGS (6)
  1. RECURONIUM [Concomitant]
  2. DEXAMETHASONE [Concomitant]
  3. SEVOFLURANE [Suspect]
     Dosage: 4%
  4. DIMENHYDRINATE [Concomitant]
  5. ONDANSETRON [Concomitant]
  6. REMIFENTANIL [Concomitant]

REACTIONS (2)
  - VENTRICULAR EXTRASYSTOLES [None]
  - VENTRICULAR TACHYCARDIA [None]
